FAERS Safety Report 9683918 (Version 1)
Quarter: 2013Q4

REPORT INFORMATION
  Report Type: Spontaneous
  Country: US (occurrence: US)
  Receive Date: 20131112
  Receipt Date: 20131112
  Transmission Date: 20140711
  Serious: No
  Sender: FDA-Public Use
  Company Number: US-MALLINCKRODT-T201304357

PATIENT
  Age: 56 Year
  Sex: Male
  Weight: 57.14 kg

DRUGS (7)
  1. FENTANYL TRANSDERMAL SYSTEM [Suspect]
     Indication: PAIN
     Dosage: 100 UG/HR, ONE PATCH Q72H
     Route: 062
     Dates: start: 201206, end: 20130909
  2. FENTANYL TRANSDERMAL SYSTEM [Suspect]
     Indication: BACK PAIN
  3. OXYCODONE/ACETAMINOPHEN [Suspect]
     Indication: PAIN
     Dosage: 5/325 MG, Q 4 HRS, PRN
     Route: 048
  4. OXYCODONE/ACETAMINOPHEN [Suspect]
     Indication: BACK PAIN
  5. ZOLOFT [Concomitant]
     Dosage: 200 MG, UNK
     Route: 048
  6. BUSPIRONE [Concomitant]
     Dosage: 30 MG, UNK
     Route: 048
  7. VITAMINS                           /90003601/ [Concomitant]
     Dosage: UNK
     Route: 048

REACTIONS (3)
  - Drug withdrawal syndrome [Not Recovered/Not Resolved]
  - Pain [Not Recovered/Not Resolved]
  - Drug screen negative [Unknown]
